FAERS Safety Report 5366676-X (Version None)
Quarter: 2007Q2

REPORT INFORMATION
  Report Type: 
  Country: None (occurrence: None)
  Receive Date: 20070622
  Receipt Date: 20060606
  Transmission Date: 20071010
  Serious: No
  Sender: FDA-Public Use
  Company Number: US-ASTRAZENECA-2006UW11542

PATIENT
  Age: 48 Year
  Sex: Female
  Weight: 56.7 kg

DRUGS (4)
  1. RHINOCORT [Suspect]
     Indication: NASAL INFLAMMATION
     Route: 045
  2. THYROID TAB [Concomitant]
  3. PANMIST JR [Concomitant]
  4. ACIPHEX [Concomitant]

REACTIONS (1)
  - RHINORRHOEA [None]
